FAERS Safety Report 23061036 (Version 1)
Quarter: 2023Q4

REPORT INFORMATION
  Report Type: Report from Study
  Country: US (occurrence: US)
  Receive Date: 20231013
  Receipt Date: 20231013
  Transmission Date: 20240109
  Serious: Yes (Hospitalization, Other)
  Sender: FDA-Public Use
  Company Number: US-ABBVIE-5355261

PATIENT
  Sex: Male

DRUGS (2)
  1. RINVOQ [Suspect]
     Active Substance: UPADACITINIB
     Indication: Colitis ulcerative
     Route: 048
     Dates: start: 20230508
  2. RINVOQ [Suspect]
     Active Substance: UPADACITINIB
     Indication: Colitis ulcerative
     Dosage: THERAPY END DATE: 2023
     Route: 048
     Dates: start: 20230418

REACTIONS (8)
  - Abscess intestinal [Not Recovered/Not Resolved]
  - Nail disorder [Not Recovered/Not Resolved]
  - Acne [Unknown]
  - Nail disorder [Recovering/Resolving]
  - Nail ridging [Recovering/Resolving]
  - Nail growth abnormal [Unknown]
  - Acne [Not Recovered/Not Resolved]
  - Gastrointestinal disorder [Unknown]

NARRATIVE: CASE EVENT DATE: 20230101
